FAERS Safety Report 5391104-8 (Version None)
Quarter: 2007Q3

REPORT INFORMATION
  Report Type: 
  Country: None (occurrence: None)
  Receive Date: 20070719
  Receipt Date: 20070711
  Transmission Date: 20080115
  Serious: Yes (Other)
  Sender: FDA-Public Use
  Company Number: PHBS2007SE11823

PATIENT
  Sex: Female

DRUGS (2)
  1. RITALIN [Suspect]
  2. CONCERTA [Concomitant]

REACTIONS (3)
  - ANXIETY [None]
  - CHEST DISCOMFORT [None]
  - CYANOSIS [None]
